FAERS Safety Report 16048960 (Version 4)
Quarter: 2019Q1

REPORT INFORMATION
  Report Type: Spontaneous
  Country: DE (occurrence: DE)
  Receive Date: 20190307
  Receipt Date: 20190328
  Transmission Date: 20190418
  Serious: Yes (Death, Life-Threatening, Hospitalization)
  Sender: FDA-Public Use
  Company Number: PHHY2019DE051667

PATIENT
  Age: 56 Year
  Sex: Female
  Weight: 42 kg

DRUGS (11)
  1. AVELUMAB [Suspect]
     Active Substance: AVELUMAB
     Dosage: 420 MG, QW
     Route: 042
     Dates: start: 20180813
  2. PEMETREXED. [Suspect]
     Active Substance: PEMETREXED
     Indication: NON-SMALL CELL LUNG CANCER
     Dosage: 690 MG (MOST RECENT DOSE 560 MG ON 01FEB2019)
     Route: 065
     Dates: start: 20181228, end: 20190201
  3. AVELUMAB [Suspect]
     Active Substance: AVELUMAB
     Indication: NON-SMALL CELL LUNG CANCER
     Dosage: 420 MG, QW
     Route: 042
     Dates: end: 20181119
  4. CARBOPLATIN. [Suspect]
     Active Substance: CARBOPLATIN
     Indication: NON-SMALL CELL LUNG CANCER
     Dosage: 448 MG (MOST RECENT DOSE 358 MG ON 01FEB2019)
     Route: 065
     Dates: start: 20181228, end: 20190201
  5. ALIMTA [Suspect]
     Active Substance: PEMETREXED DISODIUM
     Indication: NON-SMALL CELL LUNG CANCER
     Dosage: 690 MG, UNK (690 MG (MOST RECENT DOSE 560 MG ON 01FEB2019))
     Route: 065
     Dates: start: 20181228, end: 20190201
  6. AVELUMAB [Suspect]
     Active Substance: AVELUMAB
     Dosage: 420 MG, QW
     Route: 042
     Dates: start: 20180813
  7. AVELUMAB [Suspect]
     Active Substance: AVELUMAB
     Dosage: 420 MG, QW
     Route: 042
     Dates: start: 20180813
  8. AVALOX [Concomitant]
     Active Substance: MOXIFLOXACIN HYDROCHLORIDE
     Indication: PNEUMONIA
     Dosage: 400 MG, QD
     Route: 048
     Dates: start: 20190207, end: 20190214
  9. AVELUMAB [Suspect]
     Active Substance: AVELUMAB
     Dosage: 420 MG, QW
     Route: 042
     Dates: end: 20181119
  10. AVELUMAB [Suspect]
     Active Substance: AVELUMAB
     Dosage: 420 MG, QW
     Route: 042
     Dates: end: 20181119
  11. AVELUMAB [Suspect]
     Active Substance: AVELUMAB
     Dosage: 420 MG, QW
     Route: 042

REACTIONS (2)
  - Pneumonia [Fatal]
  - Pneumonitis [Not Recovered/Not Resolved]

NARRATIVE: CASE EVENT DATE: 20190211
